FAERS Safety Report 19417509 (Version 1)
Quarter: 2021Q2

REPORT INFORMATION
  Report Type: Spontaneous
  Country: GB (occurrence: GB)
  Receive Date: 20210615
  Receipt Date: 20210615
  Transmission Date: 20210717
  Serious: Yes (Disabling)
  Sender: FDA-Public Use
  Company Number: GB-ORGANON-O2106GBR001084

PATIENT
  Age: 18 Year
  Sex: Female

DRUGS (1)
  1. NEXPLANON [Suspect]
     Active Substance: ETONOGESTREL
     Indication: CONTRACEPTION
     Dosage: 1 DOSAGE FORM (1 UNIT)
     Route: 003
     Dates: start: 20200316, end: 20210601

REACTIONS (1)
  - Postural orthostatic tachycardia syndrome [Recovered/Resolved]

NARRATIVE: CASE EVENT DATE: 20210116
